FAERS Safety Report 12738477 (Version 5)
Quarter: 2017Q1

REPORT INFORMATION
  Report Type: Spontaneous
  Country: US (occurrence: US)
  Receive Date: 20160913
  Receipt Date: 20170330
  Transmission Date: 20170428
  Serious: No
  Sender: FDA-Public Use
  Company Number: US-ACTELION-A-NJ2016-132776

PATIENT
  Age: 72 Year
  Sex: Male
  Weight: 81.18 kg

DRUGS (6)
  1. REVATIO [Concomitant]
     Active Substance: SILDENAFIL CITRATE
  2. VELETRI [Suspect]
     Active Substance: EPOPROSTENOL
     Dosage: 29 NG/KG, PER MIN
     Route: 042
  3. OPSUMIT [Suspect]
     Active Substance: MACITENTAN
     Indication: PULMONARY ARTERIAL HYPERTENSION
     Route: 048
  4. VELETRI [Suspect]
     Active Substance: EPOPROSTENOL
     Indication: PULMONARY ARTERIAL HYPERTENSION
     Dosage: 25 NG/KG, PER MIN
     Route: 042
  5. VELETRI [Suspect]
     Active Substance: EPOPROSTENOL
     Dosage: 22 NG/KG, PER MIN
     Route: 042
     Dates: start: 20150203
  6. UMECLIDINIUM [Concomitant]
     Active Substance: UMECLIDINIUM BROMIDE

REACTIONS (12)
  - Arthritis [Unknown]
  - Dyspnoea [Unknown]
  - Heart rate increased [Unknown]
  - Dyspnoea exertional [Recovering/Resolving]
  - Oxygen saturation decreased [Unknown]
  - Nausea [Unknown]
  - Hypoxia [Unknown]
  - Bronchitis [Unknown]
  - Pyrexia [Unknown]
  - Muscle atrophy [Recovering/Resolving]
  - Sinus disorder [Unknown]
  - Pain [Unknown]

NARRATIVE: CASE EVENT DATE: 20161020
